FAERS Safety Report 23450459 (Version 1)
Quarter: 2024Q1

REPORT INFORMATION
  Report Type: Report from Study
  Country: US (occurrence: US)
  Receive Date: 20240129
  Receipt Date: 20240129
  Transmission Date: 20240410
  Serious: Yes (Death)
  Sender: FDA-Public Use
  Company Number: US-INSMED, INC.-2023-03671-US

PATIENT
  Age: 76 Year
  Sex: Male

DRUGS (1)
  1. ARIKAYCE [Suspect]
     Active Substance: AMIKACIN
     Indication: Mycobacterial infection
     Dosage: 590 MILLIGRAM, QD
     Route: 055
     Dates: start: 2023, end: 2023

REACTIONS (2)
  - Death [Fatal]
  - Therapy interrupted [Unknown]

NARRATIVE: CASE EVENT DATE: 20240114
